FAERS Safety Report 21320770 (Version 1)
Quarter: 2022Q3

REPORT INFORMATION
  Report Type: Spontaneous
  Country: US (occurrence: US)
  Receive Date: 20220912
  Receipt Date: 20220912
  Transmission Date: 20221027
  Serious: No
  Sender: FDA-Public Use
  Company Number: US-TAKEDA-2022TUS062454

PATIENT

DRUGS (2)
  1. GAMMAGARD LIQUID [Suspect]
     Active Substance: HUMAN IMMUNOGLOBULIN G
     Indication: Polymyositis
     Dosage: 50 GRAM, QD
     Route: 065
     Dates: start: 2019
  2. GAMMAGARD LIQUID [Suspect]
     Active Substance: HUMAN IMMUNOGLOBULIN G
     Dosage: 50 GRAM, QD
     Route: 065
     Dates: start: 2019

REACTIONS (4)
  - Product storage error [Unknown]
  - Product temperature excursion issue [Unknown]
  - Off label use [Unknown]
  - No adverse event [Unknown]
